FAERS Safety Report 24316271 (Version 1)
Quarter: 2024Q3

REPORT INFORMATION
  Report Type: Other
  Country: ID (occurrence: ID)
  Receive Date: 20240913
  Receipt Date: 20240913
  Transmission Date: 20241017
  Serious: Yes (Hospitalization, Other)
  Sender: BIONPHARMA
  Company Number: ID-Bion-013797

PATIENT
  Age: 33 Year
  Sex: Female

DRUGS (5)
  1. CARBAMAZEPINE [Suspect]
     Active Substance: CARBAMAZEPINE
     Indication: Seizure
  2. DEXAMETHASONE [Suspect]
     Active Substance: DEXAMETHASONE
     Indication: Maternal therapy to enhance foetal lung maturity
  3. TRIHEXYPHENIDYL [Concomitant]
     Active Substance: TRIHEXYPHENIDYL
     Indication: Seizure
  4. LEVETIRACETAM [Concomitant]
     Active Substance: LEVETIRACETAM
     Indication: Seizure
  5. HALOPERIDOL [Concomitant]
     Active Substance: HALOPERIDOL
     Indication: Seizure

REACTIONS (2)
  - Threatened uterine rupture [Unknown]
  - Exposure during pregnancy [Unknown]
